FAERS Safety Report 25092397 (Version 5)
Quarter: 2025Q2

REPORT INFORMATION
  Report Type: Spontaneous
  Country: JP (occurrence: JP)
  Receive Date: 20250319
  Receipt Date: 20250529
  Transmission Date: 20250717
  Serious: Yes (Other)
  Sender: ASTELLAS
  Company Number: JP-ASTELLAS-2025-AER-015098

PATIENT
  Age: 50 Year
  Sex: Male
  Weight: 75 kg

DRUGS (9)
  1. PADCEV [Suspect]
     Active Substance: ENFORTUMAB VEDOTIN-EJFV
     Indication: Metastatic carcinoma of the bladder
     Route: 042
     Dates: start: 20250110, end: 20250214
  2. PADCEV [Suspect]
     Active Substance: ENFORTUMAB VEDOTIN-EJFV
     Route: 042
     Dates: start: 20250404, end: 20250516
  3. Calcium Lactate tablet [Concomitant]
     Indication: Product used for unknown indication
     Route: 048
     Dates: start: 20210730
  4. Famotidine OD tablet [Concomitant]
     Indication: Gastric ulcer
     Route: 048
     Dates: start: 20210730
  5. CELECOXIB [Concomitant]
     Active Substance: CELECOXIB
     Indication: Pain prophylaxis
     Route: 048
     Dates: start: 20200908
  6. ACETAMINOPHEN [Concomitant]
     Active Substance: ACETAMINOPHEN
     Indication: Pain prophylaxis
     Route: 048
     Dates: start: 20210521
  7. Pregabalin tablet [Concomitant]
     Indication: Pain prophylaxis
     Route: 048
     Dates: start: 20190304
  8. OXYCONTIN [Concomitant]
     Active Substance: OXYCODONE HYDROCHLORIDE
     Indication: Pain prophylaxis
     Route: 048
     Dates: start: 20190218
  9. Ranmark Subcutaneous Injection [Concomitant]
     Indication: Metastases to bone
     Route: 058
     Dates: start: 20210410

REACTIONS (1)
  - Pulmonary toxicity [Recovered/Resolved]

NARRATIVE: CASE EVENT DATE: 20250307
